FAERS Safety Report 9678309 (Version 2)
Quarter: 2013Q4

REPORT INFORMATION
  Report Type: Spontaneous
  Country: CH (occurrence: CH)
  Receive Date: 20131108
  Receipt Date: 20131213
  Transmission Date: 20140711
  Serious: No
  Sender: FDA-Public Use
  Company Number: CH-PFIZER INC-2013316202

PATIENT
  Sex: 0

DRUGS (1)
  1. INLYTA [Suspect]
     Indication: NEOPLASM MALIGNANT
     Dosage: 5 MG, FREQUENCY UNKNOWN
     Dates: start: 2013

REACTIONS (2)
  - Disease progression [Unknown]
  - Neoplasm malignant [Unknown]
